FAERS Safety Report 13541372 (Version 1)
Quarter: 2017Q2

REPORT INFORMATION
  Report Type: Spontaneous
  Country: US (occurrence: US)
  Receive Date: 20170512
  Receipt Date: 20170512
  Transmission Date: 20170830
  Serious: No
  Sender: FDA-Public Use
  Company Number: US-SA-2016SA221935

PATIENT
  Age: 61 Year
  Sex: Female

DRUGS (5)
  1. APIDRA [Suspect]
     Active Substance: INSULIN GLULISINE
     Indication: TYPE 1 DIABETES MELLITUS
     Dosage: DOSE:14 - 28 UNITS
     Route: 065
     Dates: start: 2016
  2. APIDRA [Suspect]
     Active Substance: INSULIN GLULISINE
     Indication: TYPE 1 DIABETES MELLITUS
     Dosage: DOSE:14 - 28 UNITS
     Route: 065
     Dates: start: 20161107
  3. SOLOSTAR [Concomitant]
     Active Substance: DEVICE
     Route: 065
     Dates: start: 2016
  4. LANTUS SOLOSTAR [Concomitant]
     Active Substance: INSULIN GLARGINE
     Route: 065
     Dates: start: 2016
  5. APIDRA [Suspect]
     Active Substance: INSULIN GLULISINE
     Indication: TYPE 1 DIABETES MELLITUS
     Dosage: DOSE:14 - 28 UNITS
     Route: 065
     Dates: start: 2016

REACTIONS (7)
  - Sinus disorder [Unknown]
  - Heart rate increased [Unknown]
  - Incorrect drug administration duration [Unknown]
  - Malaise [Unknown]
  - Blood glucose increased [Not Recovered/Not Resolved]
  - Asthma [Unknown]
  - Tremor [Unknown]

NARRATIVE: CASE EVENT DATE: 2016
